FAERS Safety Report 21464620 (Version 1)
Quarter: 2022Q4

REPORT INFORMATION
  Report Type: Other
  Country: IT (occurrence: None)
  Receive Date: 20221017
  Receipt Date: 20221017
  Transmission Date: 20230113
  Serious: No
  Sender: FDA-Public Use
  Company Number: IT-ROCHE-3200170

PATIENT
  Age: 24 Year
  Sex: Female
  Weight: 54 kg

DRUGS (6)
  1. OCRELIZUMAB [Suspect]
     Active Substance: OCRELIZUMAB
     Indication: Relapsing-remitting multiple sclerosis
     Dosage: FURTHER DOSE GIVEN ON 15/OCT/2020 (250 ML), 09/JUN/2021 (520 ML), 30/DEC/2021 (510 ML), 07-JUL-2022
     Route: 042
     Dates: start: 20201001
  2. ETHINYLESTRADIOL/DROSPIRENON [Concomitant]
     Indication: Contraception
     Route: 048
     Dates: start: 20190502
  3. FOSTER [Concomitant]
     Active Substance: BECLOMETHASONE\FORMOTEROL
     Route: 048
     Dates: start: 20210501
  4. SULFAMETHOXAZOLE\TRIMETHOPRIM [Concomitant]
     Active Substance: SULFAMETHOXAZOLE\TRIMETHOPRIM
     Route: 048
     Dates: start: 20211007
  5. PREGABALIN [Concomitant]
     Active Substance: PREGABALIN
     Route: 048
     Dates: start: 20211007
  6. ESCITALOPRAM [Concomitant]
     Active Substance: ESCITALOPRAM OXALATE
     Route: 048
     Dates: start: 20211209

REACTIONS (1)
  - COVID-19 [Recovered/Resolved]

NARRATIVE: CASE EVENT DATE: 20220317
